FAERS Safety Report 20004919 (Version 3)
Quarter: 2022Q3

REPORT INFORMATION
  Report Type: Spontaneous
  Country: JP (occurrence: JP)
  Receive Date: 20211028
  Receipt Date: 20220713
  Transmission Date: 20221027
  Serious: Yes (Other)
  Sender: FDA-Public Use
  Company Number: JP-GLAXOSMITHKLINE-JP2019JPN240887

PATIENT

DRUGS (6)
  1. BENLYSTA [Suspect]
     Active Substance: BELIMUMAB
     Indication: Systemic lupus erythematosus
     Dosage: 200 MG, ONCE A WEEK
     Route: 058
     Dates: start: 20180420, end: 20180504
  2. BENLYSTA [Suspect]
     Active Substance: BELIMUMAB
     Dosage: 200 MG, ONCE A WEEK
     Route: 058
     Dates: start: 20180525, end: 20181004
  3. BENLYSTA [Suspect]
     Active Substance: BELIMUMAB
     Dosage: 200 MG
     Route: 058
     Dates: start: 20181012, end: 20190130
  4. BENLYSTA [Suspect]
     Active Substance: BELIMUMAB
     Dosage: 200 MG
     Route: 058
     Dates: start: 20190208
  5. LINAGLIPTIN [Concomitant]
     Active Substance: LINAGLIPTIN
     Route: 048
  6. INSULIN NOS [Concomitant]
     Active Substance: INSULIN NOS
     Route: 042

REACTIONS (1)
  - Diabetes mellitus [Recovered/Resolved]

NARRATIVE: CASE EVENT DATE: 20210212
